FAERS Safety Report 9396068 (Version 2)
Quarter: 2013Q3

REPORT INFORMATION
  Report Type: Spontaneous
  Country: GB (occurrence: None)
  Receive Date: 20130708
  Receipt Date: 20130725
  Transmission Date: 20140515
  Serious: Yes (Hospitalization, Disabling)
  Sender: FDA-Public Use
  Company Number: AUR-APL-2013-05558

PATIENT
  Age: 25 Year
  Sex: Female

DRUGS (5)
  1. QUETIAPINE (QUETIAPINE) [Suspect]
     Indication: PSYCHOTIC DISORDER
     Route: 048
     Dates: start: 20130408
  2. CLARITHROMYCIN (CLARITHROMYCIN) [Concomitant]
  3. CODEINE PHOSPHAE (CODEINE PHOSPHATE) [Concomitant]
  4. MIRTAZAPINE (MIRTAZAPINE) [Concomitant]
  5. PROCYCLIDINE (PROCYCLIDINE) [Concomitant]

REACTIONS (1)
  - Rhabdomyolysis [None]
